FAERS Safety Report 4470246-5 (Version None)
Quarter: 2004Q4

REPORT INFORMATION
  Report Type: 
  Country: None (occurrence: None)
  Receive Date: 20041008
  Receipt Date: 20041001
  Transmission Date: 20050328
  Serious: Yes (Life-Threatening, Hospitalization)
  Sender: FDA-Public Use
  Company Number: BR-MERCK-0410BRA00044

PATIENT
  Age: 79 Year
  Sex: Male

DRUGS (2)
  1. CHLORPROPAMIDE [Concomitant]
     Indication: DIABETES MELLITUS
     Route: 065
  2. VIOXX [Suspect]
     Indication: PAIN IN EXTREMITY
     Route: 048
     Dates: start: 20030714, end: 20040701

REACTIONS (1)
  - CEREBROVASCULAR ACCIDENT [None]
